FAERS Safety Report 10744629 (Version 1)
Quarter: 2015Q1

REPORT INFORMATION
  Report Type: Spontaneous
  Country: US (occurrence: None)
  Receive Date: 20150120
  Receipt Date: 20150120
  Transmission Date: 20150721
  Serious: No
  Sender: FDA-Public Use
  Company Number: AEGR000828

PATIENT
  Age: 66 Year
  Sex: Female
  Weight: 90.7 kg

DRUGS (2)
  1. ROSUVASTATIN [Concomitant]
     Active Substance: ROSUVASTATIN
  2. JUXTAPID [Suspect]
     Active Substance: LOMITAPIDE MESYLATE
     Indication: TYPE IIA HYPERLIPIDAEMIA
     Route: 048
     Dates: start: 20141006

REACTIONS (2)
  - Somnolence [None]
  - Headache [None]

NARRATIVE: CASE EVENT DATE: 20141009
